FAERS Safety Report 8036798-3 (Version None)
Quarter: 2011Q4

REPORT INFORMATION
  Report Type: 
  Country: None (occurrence: None)
  Receive Date: 20111202
  Receipt Date: 20100328
  Transmission Date: 20120403
  Serious: Yes (Hospitalization)
  Sender: FDA-Public Use
  Company Number: 2010SP019290

PATIENT
  Age: 42 Year
  Sex: Female
  Weight: 65.7716 kg

DRUGS (1)
  1. NUVARING [Suspect]
     Indication: CONTRACEPTION
     Dosage: VAG
     Route: 067
     Dates: start: 20050101, end: 20070401

REACTIONS (2)
  - DEEP VEIN THROMBOSIS [None]
  - PULMONARY EMBOLISM [None]
